FAERS Safety Report 4632892-5 (Version None)
Quarter: 2005Q2

REPORT INFORMATION
  Report Type: 
  Country: None (occurrence: None)
  Receive Date: 20050325
  Receipt Date: 20041220
  Transmission Date: 20051028
  Serious: No
  Sender: FDA-Public Use
  Company Number: USA040258574

PATIENT
  Age: 76 Year
  Sex: Female

DRUGS (1)
  1. FORTEO [Suspect]
     Indication: OSTEOPOROSIS
     Dosage: 20 UG/DAY
     Dates: start: 20031201

REACTIONS (4)
  - CONTUSION [None]
  - INCREASED TENDENCY TO BRUISE [None]
  - PAIN IN EXTREMITY [None]
  - SKIN DISORDER [None]
